FAERS Safety Report 25085053 (Version 2)
Quarter: 2025Q2

REPORT INFORMATION
  Report Type: Spontaneous
  Country: NL (occurrence: NL)
  Receive Date: 20250317
  Receipt Date: 20250609
  Transmission Date: 20250717
  Serious: Yes (Disabling)
  Sender: GUERBET
  Company Number: NL-GUERBET / GUERBET NEDERLAND BV-NL-20250010

PATIENT
  Age: 16 Year
  Sex: Female

DRUGS (1)
  1. DOTAREM [Suspect]
     Active Substance: GADOTERATE MEGLUMINE
     Indication: Arthrogram
     Route: 014
     Dates: start: 20250225, end: 20250225

REACTIONS (4)
  - Arthralgia [Recovering/Resolving]
  - Wrong product administered [Recovering/Resolving]
  - Overdose [Recovering/Resolving]
  - Product use issue [Recovering/Resolving]

NARRATIVE: CASE EVENT DATE: 20250225
